FAERS Safety Report 19520630 (Version 1)
Quarter: 2021Q3

REPORT INFORMATION
  Report Type: Spontaneous
  Country: US (occurrence: US)
  Receive Date: 20210712
  Receipt Date: 20210712
  Transmission Date: 20211014
  Serious: No
  Sender: FDA-Public Use
  Company Number: US-BIOVITRUM-2021US6709

PATIENT
  Sex: Male

DRUGS (1)
  1. SYNAGIS [Suspect]
     Active Substance: PALIVIZUMAB
     Indication: PREMATURE BABY
     Dosage: 100MG/ML, 50MG/0.5ML
     Route: 030
     Dates: start: 20201111, end: 202101

REACTIONS (2)
  - Dyspnoea [Unknown]
  - Fatigue [Unknown]
